FAERS Safety Report 5501431-9 (Version None)
Quarter: 2007Q4

REPORT INFORMATION
  Report Type: 
  Country: None (occurrence: None)
  Receive Date: 20071030
  Receipt Date: 20071019
  Transmission Date: 20080405
  Serious: Yes (Hospitalization)
  Sender: FDA-Public Use
  Company Number: PHHO2007TR15052

PATIENT
  Age: 38 Year
  Sex: Male
  Weight: 83 kg

DRUGS (4)
  1. CERTICAN [Suspect]
     Indication: RENAL TRANSPLANT
     Dosage: 0.75 MG, BID
     Route: 048
     Dates: start: 20060704, end: 20070910
  2. CERTICAN [Suspect]
     Dosage: 0.75 MG/DAILY
     Route: 048
     Dates: start: 20070910
  3. NEORAL [Suspect]
     Indication: RENAL TRANSPLANT
     Dosage: 50 MG, BID
     Route: 048
     Dates: start: 20060704
  4. METHYLPREDNISOLONE [Concomitant]
     Indication: RENAL TRANSPLANT
     Route: 048
     Dates: start: 20060704

REACTIONS (5)
  - DIARRHOEA [None]
  - GASTROENTERITIS [None]
  - NAUSEA [None]
  - PYREXIA [None]
  - VOMITING [None]
